FAERS Safety Report 9818836 (Version 1)
Quarter: 2014Q1

REPORT INFORMATION
  Report Type: Spontaneous
  Country: US (occurrence: US)
  Receive Date: 20140115
  Receipt Date: 20140115
  Transmission Date: 20141002
  Serious: No
  Sender: FDA-Public Use
  Company Number: US-PFIZER INC-2014008489

PATIENT
  Age: 25 Year
  Sex: Male
  Weight: 68.03 kg

DRUGS (2)
  1. ZYVOX [Suspect]
     Indication: MYCOBACTERIUM ABSCESSUS INFECTION
     Dosage: 600 MG, DAILY
     Dates: start: 201210, end: 2013
  2. ALBUTEROL [Concomitant]
     Indication: CYSTIC FIBROSIS
     Dosage: UNK, 2X/DAY

REACTIONS (1)
  - Neuropathy peripheral [Not Recovered/Not Resolved]
